FAERS Safety Report 5130068-9 (Version None)
Quarter: 2006Q4

REPORT INFORMATION
  Report Type: 
  Country: None (occurrence: None)
  Receive Date: 20061013
  Receipt Date: 20060926
  Transmission Date: 20070319
  Serious: Yes (Hospitalization)
  Sender: FDA-Public Use
  Company Number: FR2006009006572

PATIENT
  Age: 79 Year
  Sex: Female

DRUGS (3)
  1. FORTEO [Suspect]
     Indication: OSTEOPOROSIS
     Dosage: 20 UG, DAILY (1/D)
     Dates: start: 20050901
  2. FORTEO PEN (FORTEO PEN) PEN, DISOPSABLE [Concomitant]
  3. LODZO (BISOPROLOL FUMARATE, HYDROCHLOROTHIAZIDE [Concomitant]

REACTIONS (5)
  - ABASIA [None]
  - INTERVERTEBRAL DISC PROTRUSION [None]
  - MICTURITION URGENCY [None]
  - POST PROCEDURAL COMPLICATION [None]
  - SCIATICA [None]
